FAERS Safety Report 6505269-5 (Version None)
Quarter: 2009Q4

REPORT INFORMATION
  Report Type: 
  Country: None (occurrence: None)
  Receive Date: 20091218
  Receipt Date: 20091210
  Transmission Date: 20100525
  Serious: Yes (Other)
  Sender: FDA-Public Use
  Company Number: NL-JNJFOC-20091204110

PATIENT
  Age: 59 Year
  Sex: Female

DRUGS (1)
  1. RISPERDAL [Suspect]
     Indication: DRUG USE FOR UNKNOWN INDICATION
     Route: 065

REACTIONS (5)
  - CARDIAC DISORDER [None]
  - MALAISE [None]
  - PSYCHOTIC DISORDER [None]
  - RHINORRHOEA [None]
  - UPPER AIRWAY OBSTRUCTION [None]
